FAERS Safety Report 21581689 (Version 2)
Quarter: 2022Q4

REPORT INFORMATION
  Report Type: Spontaneous
  Country: IT (occurrence: IT)
  Receive Date: 20221111
  Receipt Date: 20221123
  Transmission Date: 20230113
  Serious: Yes (Other)
  Sender: FDA-Public Use
  Company Number: IT-ALKEM LABORATORIES LIMITED-IT-ALKEM-2022-12554

PATIENT
  Age: 27 Year
  Sex: Male

DRUGS (1)
  1. LACOSAMIDE [Suspect]
     Active Substance: LACOSAMIDE
     Dosage: 400 MG/DAY, QD
     Route: 065

REACTIONS (2)
  - Erectile dysfunction [Recovered/Resolved]
  - Loss of libido [Recovered/Resolved]
